FAERS Safety Report 5240380-0 (Version None)
Quarter: 2007Q1

REPORT INFORMATION
  Report Type: 
  Country: None (occurrence: None)
  Receive Date: 20070219
  Receipt Date: 20070213
  Transmission Date: 20070707
  Serious: Yes (Death)
  Sender: FDA-Public Use
  Company Number: PHBS2007ES02759

PATIENT

DRUGS (1)
  1. VALSARTAN AND HYDROCHLOROTHIAZIDE [Suspect]
     Route: 064

REACTIONS (2)
  - DEATH NEONATAL [None]
  - DRUG EXPOSURE DURING PREGNANCY [None]
